FAERS Safety Report 6073585-X (Version None)
Quarter: 2009Q1

REPORT INFORMATION
  Report Type: 
  Country: None (occurrence: None)
  Receive Date: 20090211
  Receipt Date: 20090130
  Transmission Date: 20090719
  Serious: Yes (Death, Other)
  Sender: FDA-Public Use
  Company Number: BE-PFIZER INC-2008073872

PATIENT

DRUGS (5)
  1. SUTENT [Suspect]
     Indication: OESOPHAGEAL CARCINOMA
     Dosage: 50 MG, 1X/DAY
     Route: 048
     Dates: start: 20080811, end: 20080827
  2. FORLAX [Concomitant]
     Route: 048
  3. MEDROL [Concomitant]
     Route: 048
  4. OMEPRAZOLE [Concomitant]
     Route: 048
  5. DURAGESIC-100 [Concomitant]
     Route: 062

REACTIONS (10)
  - CONFUSIONAL STATE [None]
  - DISEASE PROGRESSION [None]
  - DYSPNOEA [None]
  - GENERAL PHYSICAL HEALTH DETERIORATION [None]
  - PNEUMONIA [None]
  - PNEUMONIA ASPIRATION [None]
  - PULMONARY EMBOLISM [None]
  - RESPIRATORY FAILURE [None]
  - SOMNOLENCE [None]
  - VOMITING [None]
